FAERS Safety Report 18733050 (Version 2)
Quarter: 2021Q1

REPORT INFORMATION
  Report Type: Report from Study
  Country: None (occurrence: IN)
  Receive Date: 20210113
  Receipt Date: 20210115
  Transmission Date: 20210419
  Serious: Yes (Death)
  Sender: FDA-Public Use
  Company Number: IN-ABBVIE-21P-078-3726784-00

PATIENT
  Age: 48 Year
  Sex: Male

DRUGS (4)
  1. PANTOCID [Concomitant]
     Indication: PRODUCT USED FOR UNKNOWN INDICATION
  2. TOPCEF [Concomitant]
     Indication: PRODUCT USED FOR UNKNOWN INDICATION
  3. TAPAL [Concomitant]
     Indication: PRODUCT USED FOR UNKNOWN INDICATION
  4. CREON [Suspect]
     Active Substance: PANCRELIPASE AMYLASE\PANCRELIPASE LIPASE\PANCRELIPASE PROTEASE
     Indication: PANCREATITIS
     Dosage: 3 TIMES PER DAY?25K
     Route: 048
     Dates: start: 202012, end: 202101

REACTIONS (5)
  - Vomiting [Fatal]
  - Constipation [Fatal]
  - Cardiac arrest [Fatal]
  - Flatulence [Fatal]
  - Feeling cold [Fatal]

NARRATIVE: CASE EVENT DATE: 202101
